FAERS Safety Report 8335844-7 (Version None)
Quarter: 2012Q2

REPORT INFORMATION
  Report Type: 
  Country: None (occurrence: None)
  Receive Date: 20120501
  Receipt Date: 20120501
  Transmission Date: 20120825
  Serious: Yes (Hospitalization)
  Sender: FDA-Public Use
  Company Number: None

PATIENT

DRUGS (11)
  1. HERECEPTIN [Concomitant]
  2. M.V.I. [Concomitant]
  3. ATENOLOL [Concomitant]
  4. LIPITOR [Concomitant]
  5. XELODA [Suspect]
     Indication: BREAST CANCER
     Dosage: 2000MG BID PO
     Route: 048
     Dates: start: 20120301, end: 20120401
  6. VIT C [Concomitant]
  7. POTASSIUM CHLORIDE [Concomitant]
  8. ASPIRIN [Concomitant]
  9. XGEVA [Concomitant]
  10. HYDROCHLOROTHIAZIDE [Concomitant]
  11. CALCIUM/VIT D [Concomitant]

REACTIONS (1)
  - DIARRHOEA [None]
